FAERS Safety Report 18534502 (Version 1)
Quarter: 2020Q4

REPORT INFORMATION
  Report Type: Spontaneous
  Country: US (occurrence: US)
  Receive Date: 20201123
  Receipt Date: 20201123
  Transmission Date: 20210114
  Serious: Yes (Other)
  Sender: FDA-Public Use
  Company Number: US-INCYTE CORPORATION-2020IN011515

PATIENT

DRUGS (1)
  1. JAKAFI [Suspect]
     Active Substance: RUXOLITINIB
     Dosage: 10 MILLIGRAM, BID
     Route: 048
     Dates: start: 20181011

REACTIONS (3)
  - Neuropathy peripheral [Not Recovered/Not Resolved]
  - Rosacea [Not Recovered/Not Resolved]
  - Red blood cell count increased [Not Recovered/Not Resolved]
